FAERS Safety Report 12996961 (Version 4)
Quarter: 2017Q1

REPORT INFORMATION
  Report Type: Report from Study
  Country: US (occurrence: US)
  Receive Date: 20161205
  Receipt Date: 20170202
  Transmission Date: 20170428
  Serious: Yes (Hospitalization, Other)
  Sender: FDA-Public Use
  Company Number: US-ACTELION-A-US2016-134287

PATIENT
  Age: 54 Year
  Sex: Female

DRUGS (3)
  1. VELETRI [Suspect]
     Active Substance: EPOPROSTENOL
     Indication: PULMONARY ARTERIAL HYPERTENSION
     Dosage: 21.6 NG/KG, PER MIN
     Route: 042
     Dates: start: 20151211
  2. ADCIRCA [Concomitant]
     Active Substance: TADALAFIL
  3. LETAIRIS [Suspect]
     Active Substance: AMBRISENTAN
     Indication: PRODUCT USED FOR UNKNOWN INDICATION
     Dosage: 10 MG, UNK
     Route: 065

REACTIONS (27)
  - Vertigo [Unknown]
  - Loss of consciousness [Unknown]
  - Dyspnoea [Unknown]
  - Walking distance test abnormal [Unknown]
  - Cough [Unknown]
  - Fluid overload [Unknown]
  - Incontinence [Unknown]
  - Device alarm issue [Unknown]
  - Palpitations [Unknown]
  - Pain in jaw [Unknown]
  - Catheter site pain [Unknown]
  - Amnesia [Unknown]
  - Grief reaction [Unknown]
  - Vision blurred [Unknown]
  - Syncope [Unknown]
  - Fluid retention [Unknown]
  - Anxiety [Unknown]
  - Dizziness [Unknown]
  - Dyspnoea exertional [Unknown]
  - Oxygen saturation decreased [Unknown]
  - Pulmonary oedema [Unknown]
  - Arthralgia [Unknown]
  - Pneumonia [Unknown]
  - Flushing [Unknown]
  - Upper respiratory tract infection [Unknown]
  - Headache [Unknown]
  - Weight decreased [Unknown]

NARRATIVE: CASE EVENT DATE: 201604
